FAERS Safety Report 5135499-9 (Version None)
Quarter: 2006Q4

REPORT INFORMATION
  Report Type: 
  Country: None (occurrence: None)
  Receive Date: 20061026
  Receipt Date: 20061016
  Transmission Date: 20070319
  Serious: Yes (Death)
  Sender: FDA-Public Use
  Company Number: US-JNJFOC-20060103249

PATIENT
  Sex: Male
  Weight: 80.29 kg

DRUGS (10)
  1. DURAGESIC-100 [Suspect]
     Route: 062
  2. DURAGESIC-100 [Suspect]
     Route: 062
  3. DURAGESIC-100 [Suspect]
     Route: 062
  4. DURAGESIC-100 [Suspect]
     Route: 062
  5. DURAGESIC-100 [Suspect]
     Indication: PAIN
     Route: 062
  6. HYDROCODONE [Interacting]
     Indication: PAIN
     Dosage: 10 MG HYDROCODONE/325 MG ACETAMINOPHEN, 1 AND 1/2 TABLETS, 1 IN 6 HOURS
     Route: 048
  7. FLEXERIL [Concomitant]
  8. DIPHEN [Concomitant]
  9. VI-Q-TUSS [Concomitant]
  10. ZOLOFT [Concomitant]

REACTIONS (8)
  - APPLICATION SITE DERMATITIS [None]
  - APPLICATION SITE PRURITUS [None]
  - DEVICE LEAKAGE [None]
  - DRUG INTERACTION [None]
  - DRUG WITHDRAWAL SYNDROME [None]
  - HYPERTENSION [None]
  - NARCOTIC INTOXICATION [None]
  - OVERDOSE [None]
